FAERS Safety Report 18017976 (Version 1)
Quarter: 2020Q3

REPORT INFORMATION
  Report Type: Spontaneous
  Country: US (occurrence: US)
  Receive Date: 20200713
  Receipt Date: 20200713
  Transmission Date: 20201103
  Serious: Yes (Other)
  Sender: FDA-Public Use
  Company Number: US-ACELLA PHARMACEUTICALS, LLC-2087345

PATIENT

DRUGS (2)
  1. NP THYROID [Suspect]
     Active Substance: LEVOTHYROXINE\LIOTHYRONINE
     Indication: PRODUCT USED FOR UNKNOWN INDICATION
     Route: 065
  2. ESTROGEN [Concomitant]
     Active Substance: ESTROGENS
     Route: 065

REACTIONS (8)
  - Skin ulcer [Unknown]
  - Muscle spasms [Unknown]
  - Cholecystectomy [Unknown]
  - Adverse event [Unknown]
  - Malaise [Unknown]
  - Headache [Unknown]
  - Thyroiditis [Unknown]
  - Abdominal discomfort [Unknown]
